FAERS Safety Report 6187332-4 (Version None)
Quarter: 2009Q2

REPORT INFORMATION
  Report Type: 
  Country: None (occurrence: None)
  Receive Date: 20090512
  Receipt Date: 20090507
  Transmission Date: 20091009
  Serious: Yes (Death, Life-Threatening)
  Sender: FDA-Public Use
  Company Number: JP-BAYER-200911350BYL

PATIENT
  Age: 82 Year
  Sex: Female

DRUGS (1)
  1. NEXAVAR [Suspect]
     Indication: RENAL CELL CARCINOMA
     Dosage: UNIT DOSE: 200 MG
     Route: 048
     Dates: start: 20090406, end: 20090420

REACTIONS (4)
  - FATIGUE [None]
  - NEUTROPHIL COUNT DECREASED [None]
  - RASH [None]
  - RENAL CELL CARCINOMA [None]
